FAERS Safety Report 23745590 (Version 1)
Quarter: 2024Q2

REPORT INFORMATION
  Report Type: Spontaneous
  Country: IT (occurrence: IT)
  Receive Date: 20240416
  Receipt Date: 20240416
  Transmission Date: 20240717
  Serious: Yes (Hospitalization, Other)
  Sender: FDA-Public Use
  Company Number: IT-ALKEM LABORATORIES LIMITED-IT-ALKEM-2023-03261

PATIENT
  Age: 49 Year
  Sex: Male

DRUGS (9)
  1. ARIPIPRAZOLE [Suspect]
     Active Substance: ARIPIPRAZOLE
     Indication: Schizophrenia
     Dosage: UNK
     Route: 065
  2. CLOZAPINE [Suspect]
     Active Substance: CLOZAPINE
     Indication: Schizophrenia
     Dosage: UNK
     Route: 065
  3. HALOPERIDOL [Suspect]
     Active Substance: HALOPERIDOL
     Indication: Schizophrenia
     Dosage: 6 MILLIGRAM, QD
     Route: 048
  4. PALIPERIDONE [Suspect]
     Active Substance: PALIPERIDONE
     Indication: Schizophrenia
     Dosage: UNK
     Route: 065
  5. RISPERIDONE [Suspect]
     Active Substance: RISPERIDONE
     Indication: Schizophrenia
     Dosage: UNK
     Route: 065
  6. VALPROIC ACID [Suspect]
     Active Substance: VALPROIC ACID
     Indication: Schizophrenia
     Dosage: 2000 MILLIGRAM, QD
     Route: 048
  7. CANNABIS SATIVA SUBSP. INDICA TOP [Concomitant]
     Active Substance: CANNABIS SATIVA SUBSP. INDICA TOP
     Indication: Substance abuse
     Dosage: UNK
     Route: 065
  8. COCAINE [Concomitant]
     Active Substance: COCAINE
     Indication: Substance abuse
     Dosage: UNK
     Route: 065
  9. HEROIN [Concomitant]
     Active Substance: DIAMORPHINE
     Indication: Substance abuse
     Dosage: UNK
     Route: 065

REACTIONS (6)
  - Auditory disorder [Unknown]
  - Delusion [Unknown]
  - Psychomotor hyperactivity [Unknown]
  - Disease recurrence [Unknown]
  - Aggression [Unknown]
  - Therapy partial responder [Unknown]
